FAERS Safety Report 8503456-8 (Version None)
Quarter: 2012Q3

REPORT INFORMATION
  Report Type: 
  Country: None (occurrence: None)
  Receive Date: 20120711
  Receipt Date: 20120705
  Transmission Date: 20120928
  Serious: Yes (Other)
  Sender: FDA-Public Use
  Company Number: US-GLAXOSMITHKLINE-A0974787A

PATIENT
  Age: 6 Year
  Sex: Female

DRUGS (2)
  1. CLARITIN [Concomitant]
  2. FLONASE [Suspect]
     Indication: RHINITIS ALLERGIC
     Dosage: 1SPR PER DAY
     Route: 065
     Dates: start: 20120327, end: 20120406

REACTIONS (4)
  - VISUAL IMPAIRMENT [None]
  - CORRECTIVE LENS USER [None]
  - HEADACHE [None]
  - INTRAOCULAR PRESSURE INCREASED [None]
